FAERS Safety Report 5634955-4 (Version None)
Quarter: 2008Q1

REPORT INFORMATION
  Report Type: 
  Country: None (occurrence: None)
  Receive Date: 20080221
  Receipt Date: 20080221
  Transmission Date: 20080703
  Serious: Yes (Hospitalization)
  Sender: FDA-Public Use
  Company Number: None

PATIENT
  Age: 83 Year
  Sex: Male
  Weight: 56 kg

DRUGS (2)
  1. METOPROLOL TARTRATE [Suspect]
     Dosage: 50MG BID PO
     Route: 048
     Dates: start: 20070211, end: 20080104
  2. AMLODIPINE BESYLATE 10MG TAB [Suspect]
     Dosage: 10MG EVERY DAY PO
     Route: 048
     Dates: start: 20070805, end: 20080104

REACTIONS (2)
  - HYPOTENSION [None]
  - SYNCOPE [None]
